FAERS Safety Report 24341113 (Version 4)
Quarter: 2025Q1

REPORT INFORMATION
  Report Type: Report from Study
  Country: US (occurrence: US)
  Receive Date: 20240919
  Receipt Date: 20250117
  Transmission Date: 20250409
  Serious: Yes (Other)
  Sender: SUNOVION
  Company Number: US-SUMITOMO PHARMA SWITZERLAND GMBH-2024SPA002874

PATIENT

DRUGS (2)
  1. ORGOVYX [Suspect]
     Active Substance: RELUGOLIX
     Indication: Prostate cancer
     Route: 048
  2. ORGOVYX [Suspect]
     Active Substance: RELUGOLIX
     Dosage: 120 MG, QD
     Route: 048
     Dates: start: 20240306

REACTIONS (6)
  - Atrial fibrillation [Unknown]
  - Cardiac disorder [Unknown]
  - Heart rate decreased [Unknown]
  - Pallor [Unknown]
  - Blood pressure fluctuation [Unknown]
  - Insomnia [Unknown]
